FAERS Safety Report 9631372 (Version 2)
Quarter: 2013Q4

REPORT INFORMATION
  Report Type: Spontaneous
  Country: AU (occurrence: None)
  Receive Date: 20131015
  Receipt Date: 20131022
  Transmission Date: 20140711
  Serious: Yes (Other)
  Sender: FDA-Public Use
  Company Number: AUR-APL-2013-08364

PATIENT
  Age: 26 Year
  Sex: Female

DRUGS (3)
  1. SERTRALINE [Suspect]
     Indication: DEPRESSION
     Dosage: 1 D
  2. RANITIDINE (RANITIDINE) [Concomitant]
  3. METOCLOPRAMIDE (METOCLOPRAMIDE) [Concomitant]

REACTIONS (5)
  - Nausea [None]
  - Vomiting [None]
  - Malaise [None]
  - Chromaturia [None]
  - Hepatitis [None]
